FAERS Safety Report 5715567-0 (Version None)
Quarter: 2008Q2

REPORT INFORMATION
  Report Type: 
  Country: None (occurrence: None)
  Receive Date: 20080418
  Receipt Date: 20080401
  Transmission Date: 20081010
  Serious: Yes (Life-Threatening, Hospitalization)
  Sender: FDA-Public Use
  Company Number: JPI-P-002861

PATIENT
  Age: 39 Year
  Sex: Male

DRUGS (10)
  1. LUVOX [Suspect]
     Indication: OBSESSIVE-COMPULSIVE DISORDER
     Dosage: 200 MG 950 MG, 4 IN 1 D), ORAL; 150 MG, D, ORAL; 200 MG, D, ORAL; TAKEN A FEW DAYS, ORAL
     Route: 048
     Dates: start: 20071101, end: 20070101
  2. LUVOX [Suspect]
     Indication: OBSESSIVE-COMPULSIVE DISORDER
     Dosage: 200 MG 950 MG, 4 IN 1 D), ORAL; 150 MG, D, ORAL; 200 MG, D, ORAL; TAKEN A FEW DAYS, ORAL
     Route: 048
     Dates: start: 20071002, end: 20071129
  3. LUVOX [Suspect]
     Indication: OBSESSIVE-COMPULSIVE DISORDER
     Dosage: 200 MG 950 MG, 4 IN 1 D), ORAL; 150 MG, D, ORAL; 200 MG, D, ORAL; TAKEN A FEW DAYS, ORAL
     Route: 048
     Dates: start: 20071206, end: 20071226
  4. LUVOX [Suspect]
     Indication: OBSESSIVE-COMPULSIVE DISORDER
     Dosage: 200 MG 950 MG, 4 IN 1 D), ORAL; 150 MG, D, ORAL; 200 MG, D, ORAL; TAKEN A FEW DAYS, ORAL
     Route: 048
     Dates: start: 20071227, end: 20080105
  5. PAROXETINE HCL [Suspect]
     Indication: OBSESSIVE-COMPULSIVE DISORDER
     Dosage: 20 MG, D, ORAL; 20 MG, D, ORAL
     Route: 048
     Dates: start: 20071002, end: 20071206
  6. PAROXETINE HCL [Suspect]
     Indication: OBSESSIVE-COMPULSIVE DISORDER
     Dosage: 20 MG, D, ORAL; 20 MG, D, ORAL
     Route: 048
     Dates: start: 20071227, end: 20080105
  7. TEPRENONE (TEPRENONE) [Concomitant]
  8. NITRAZEPAM [Concomitant]
  9. ZOLPIDEM TARTRATE [Concomitant]
  10. QUETIAPINE FUMARATE [Concomitant]

REACTIONS (17)
  - ALANINE AMINOTRANSFERASE INCREASED [None]
  - ASPARTATE AMINOTRANSFERASE INCREASED [None]
  - BLOOD ALKALINE PHOSPHATASE INCREASED [None]
  - CEREBRAL ATROPHY [None]
  - COAGULOPATHY [None]
  - COGNITIVE DISORDER [None]
  - CONVULSION [None]
  - DIALYSIS [None]
  - DRUG INEFFECTIVE [None]
  - HEPATIC FUNCTION ABNORMAL [None]
  - INTENTIONAL OVERDOSE [None]
  - LIVER DISORDER [None]
  - MENTAL DISORDER [None]
  - PROTHROMBIN TIME PROLONGED [None]
  - RENAL IMPAIRMENT [None]
  - SELF-MEDICATION [None]
  - WHITE BLOOD CELL COUNT INCREASED [None]
